FAERS Safety Report 16710676 (Version 2)
Quarter: 2019Q3

REPORT INFORMATION
  Report Type: Spontaneous
  Country: FI (occurrence: FI)
  Receive Date: 20190816
  Receipt Date: 20190829
  Transmission Date: 20191004
  Serious: Yes (Disabling)
  Sender: FDA-Public Use
  Company Number: FI-ASTRAZENECA-2019SF13811

PATIENT
  Age: 37 Year
  Sex: Female

DRUGS (7)
  1. RAMIPRIL ORION [Concomitant]
     Active Substance: RAMIPRIL
     Indication: HYPERTENSION
     Dosage: 5,MG,DAILY
     Route: 048
     Dates: start: 2018
  2. NORSPAN [Concomitant]
     Active Substance: BUPRENORPHINE
     Indication: PAIN
     Dates: start: 2009, end: 2018
  3. RIVATRIL [Concomitant]
     Active Substance: CLONAZEPAM
     Indication: PAIN
  4. BISOPROLOL ACTAVIS [Concomitant]
     Active Substance: BISOPROLOL
     Indication: HYPERTENSION
     Dosage: 10,MG,DAILY
     Route: 048
     Dates: start: 2005
  5. PANACOD [Concomitant]
     Active Substance: ACETAMINOPHEN\CODEINE PHOSPHATE
     Indication: PAIN
     Route: 048
  6. THYROXIN [Concomitant]
     Active Substance: LEVOTHYROXINE
     Dosage: 100,MG,DAILY
     Route: 048
  7. KETIPINOR [Suspect]
     Active Substance: QUETIAPINE FUMARATE
     Indication: SLEEP DISORDER
     Dosage: 1-2 TABLETS IN A DAY
     Route: 048
     Dates: start: 201410

REACTIONS (14)
  - Heart rate increased [Not Recovered/Not Resolved]
  - Hallucination [Not Recovered/Not Resolved]
  - Drug ineffective [Not Recovered/Not Resolved]
  - Malaise [Not Recovered/Not Resolved]
  - Gait disturbance [Not Recovered/Not Resolved]
  - Fear [Not Recovered/Not Resolved]
  - Head discomfort [Not Recovered/Not Resolved]
  - Insomnia [Unknown]
  - Fear of death [Not Recovered/Not Resolved]
  - Weight increased [Unknown]
  - Pain [Unknown]
  - Panic disorder [Unknown]
  - Chest discomfort [Not Recovered/Not Resolved]
  - Product use in unapproved indication [Unknown]

NARRATIVE: CASE EVENT DATE: 2004
